FAERS Safety Report 6525528-X (Version None)
Quarter: 2010Q1

REPORT INFORMATION
  Report Type: 
  Country: None (occurrence: None)
  Receive Date: 20100104
  Receipt Date: 20091224
  Transmission Date: 20100710
  Serious: Yes (Death)
  Sender: FDA-Public Use
  Company Number: FR-TEVA-219258ISR

PATIENT
  Age: 40 Year
  Sex: Male

DRUGS (3)
  1. METHOTREXATE [Suspect]
     Indication: ARTHRITIS
  2. NON STEROIDAL  ANTI-INFLAMMATORY DRUGS [Suspect]
     Indication: ARTHRITIS
  3. PREDNISONE [Suspect]

REACTIONS (7)
  - ANKYLOSING SPONDYLITIS [None]
  - CARDIAC FAILURE [None]
  - CORONARY ARTERY ANEURYSM [None]
  - DRUG INEFFECTIVE [None]
  - KAWASAKI'S DISEASE [None]
  - NEPHROTIC SYNDROME [None]
  - RENAL ANEURYSM [None]
